FAERS Safety Report 9771249 (Version 2)
Quarter: 2016Q1

REPORT INFORMATION
  Report Type: Spontaneous
  Country: US (occurrence: US)
  Receive Date: 20131218
  Receipt Date: 20160225
  Transmission Date: 20160526
  Serious: Yes (Other)
  Sender: FDA-Public Use
  Company Number: US-KOWA-2013S1002130

PATIENT
  Sex: Male

DRUGS (5)
  1. LIPOFEN [Suspect]
     Active Substance: FENOFIBRATE
     Dosage: 150 MG, QD
     Route: 048
     Dates: start: 20131120, end: 20131129
  2. METFORMIN [Suspect]
     Active Substance: METFORMIN HYDROCHLORIDE
     Indication: TYPE 2 DIABETES MELLITUS
  3. GLIMEPIRIDE. [Suspect]
     Active Substance: GLIMEPIRIDE
     Indication: TYPE 2 DIABETES MELLITUS
  4. LIPOFEN [Suspect]
     Active Substance: FENOFIBRATE
     Dosage: 150 MG, QD
     Route: 048
     Dates: start: 20131203
  5. LORATADINE. [Suspect]
     Active Substance: LORATADINE
     Indication: NASAL DECONGESTION THERAPY

REACTIONS (1)
  - Blood urine present [Recovered/Resolved]

NARRATIVE: CASE EVENT DATE: 20131128
